FAERS Safety Report 13373519 (Version 1)
Quarter: 2017Q1

REPORT INFORMATION
  Report Type: Spontaneous
  Country: DE (occurrence: DE)
  Receive Date: 20170327
  Receipt Date: 20170327
  Transmission Date: 20170429
  Serious: Yes (Other)
  Sender: FDA-Public Use
  Company Number: DE-009507513-1703DEU010934

PATIENT
  Age: 76 Year
  Sex: Male
  Weight: 125 kg

DRUGS (8)
  1. JARDIANCE [Suspect]
     Active Substance: EMPAGLIFLOZIN
     Dosage: 10 MG, QD
  2. XELEVIA [Suspect]
     Active Substance: SITAGLIPTIN PHOSPHATE
     Dosage: 100 MG, EVERY DAY
  3. EZETROL 10 MG TABLETTEN [Concomitant]
     Active Substance: EZETIMIBE
     Dosage: 10 MG, QD
     Route: 048
  4. METFORMIN RATIOPHARM COMPRIMIDOS RECUVIERTOS CON PELICULA 500MG [Suspect]
     Active Substance: METFORMIN HYDROCHLORIDE
     Dosage: 1000 MG, BID
  5. PANTOPRAZOLE [Concomitant]
     Active Substance: PANTOPRAZOLE SODIUM
     Dosage: 20 MG, QD
  6. ALLOPURINOL-RATIOPHARM [Concomitant]
     Active Substance: ALLOPURINOL
     Dosage: 300 MG, EVERY DAY
  7. ASPIRIN. [Concomitant]
     Active Substance: ASPIRIN
     Dosage: 100 MG, QD
  8. DUODART [Concomitant]
     Active Substance: DUTASTERIDE\TAMSULOSIN
     Dosage: 0.9 MG, EVERY DAY

REACTIONS (11)
  - Balanitis candida [Unknown]
  - Drug-induced liver injury [Unknown]
  - Performance status decreased [Unknown]
  - Gynaecomastia [Unknown]
  - Alopecia [Unknown]
  - Cardiac discomfort [Unknown]
  - Fatigue [Unknown]
  - Weight decreased [Unknown]
  - General physical health deterioration [Unknown]
  - Pruritus [Unknown]
  - Muscle atrophy [Unknown]
